FAERS Safety Report 5567554-3 (Version None)
Quarter: 2007Q4

REPORT INFORMATION
  Report Type: 
  Country: None (occurrence: None)
  Receive Date: 20071219
  Receipt Date: 20071207
  Transmission Date: 20080405
  Serious: Yes (Other)
  Sender: FDA-Public Use
  Company Number: US-PFIZER INC-2007104982

PATIENT
  Sex: Male
  Weight: 90.909 kg

DRUGS (12)
  1. CHANTIX [Suspect]
     Indication: SMOKING CESSATION THERAPY
  2. TAMSULOSIN HCL [Concomitant]
  3. LEXAPRO [Concomitant]
  4. DILTIAZEM [Concomitant]
  5. CLONAZEPAM [Concomitant]
  6. ASTELIN [Concomitant]
  7. OXYGEN [Concomitant]
  8. ALBUTEROL [Concomitant]
  9. FORADIL [Concomitant]
  10. ACETYLCYSTEINE [Concomitant]
  11. SIMVASTATIN [Concomitant]
  12. DIGITEK [Concomitant]

REACTIONS (7)
  - CHANGE OF BOWEL HABIT [None]
  - CONFUSIONAL STATE [None]
  - INSOMNIA [None]
  - MEMORY IMPAIRMENT [None]
  - NIGHTMARE [None]
  - STOMACH DISCOMFORT [None]
  - SYNCOPE [None]
